FAERS Safety Report 13725377 (Version 1)
Quarter: 2017Q3

REPORT INFORMATION
  Report Type: Spontaneous
  Country: US (occurrence: US)
  Receive Date: 20170706
  Receipt Date: 20170706
  Transmission Date: 20171127
  Serious: Yes (Hospitalization, Disabling, Other)
  Sender: FDA-Public Use
  Company Number: None

PATIENT
  Age: 54 Year
  Sex: Female

DRUGS (2)
  1. VALIUM [Suspect]
     Active Substance: DIAZEPAM
     Indication: MENOPAUSAL SYMPTOMS
     Dosage: ?          OTHER STRENGTH:MG;QUANTITY:100 TABLET(S);?EVERY 6 HOURS ORAL
     Route: 048
  2. KLONOPIN [Concomitant]
     Active Substance: CLONAZEPAM

REACTIONS (11)
  - Speech disorder [None]
  - Insomnia [None]
  - Gait inability [None]
  - Blood bilirubin increased [None]
  - Visual impairment [None]
  - Paraesthesia [None]
  - Burning sensation [None]
  - Withdrawal syndrome [None]
  - Hepatic enzyme increased [None]
  - Muscle atrophy [None]
  - Hepatic function abnormal [None]
